FAERS Safety Report 4302405-6 (Version None)
Quarter: 2004Q1

REPORT INFORMATION
  Report Type: 
  Country: None (occurrence: None)
  Receive Date: 20040223
  Receipt Date: 20040114
  Transmission Date: 20041129
  Serious: Yes (Hospitalization)
  Sender: FDA-Public Use
  Company Number: 7242

PATIENT
  Age: 54 Year
  Sex: Female

DRUGS (1)
  1. PACLITAXEL [Suspect]
     Indication: BREAST CANCER METASTATIC
     Dosage: 156 MG WEEKLY, IV
     Route: 042
     Dates: start: 20030630, end: 20031124

REACTIONS (9)
  - BACK PAIN [None]
  - DIZZINESS EXERTIONAL [None]
  - FLUSHING [None]
  - HYPOAESTHESIA [None]
  - METASTASES TO BONE [None]
  - NAIL DISORDER [None]
  - RASH ERYTHEMATOUS [None]
  - SPINAL CORD COMPRESSION [None]
  - THROAT TIGHTNESS [None]
